FAERS Safety Report 6758054-3 (Version None)
Quarter: 2010Q2

REPORT INFORMATION
  Report Type: 
  Country: None (occurrence: None)
  Receive Date: 20100603
  Receipt Date: 20100518
  Transmission Date: 20101027
  Serious: Yes (Other)
  Sender: FDA-Public Use
  Company Number: ACO_00775_2010

PATIENT
  Sex: Female

DRUGS (11)
  1. AMPYRA [Suspect]
     Indication: SECONDARY PROGRESSIVE MULTIPLE SCLEROSIS
     Dosage: 10 MG BID, 12 HOURS APART ORAL
     Route: 048
     Dates: start: 20100406, end: 20100418
  2. BACLOFEN [Concomitant]
  3. AMANTADINE HCL [Concomitant]
  4. ZOCOR [Concomitant]
  5. LISINOPRIL [Concomitant]
  6. HYDROCHLOROTHIAZIDE [Concomitant]
  7. PRILOSEC [Concomitant]
  8. AMITRIPTYLINE [Concomitant]
  9. EFFEXOR [Concomitant]
  10. ATENOLOL [Concomitant]
  11. MULTI-VITAMIN [Concomitant]

REACTIONS (12)
  - DRUG DOSE OMISSION [None]
  - FATIGUE [None]
  - GRAND MAL CONVULSION [None]
  - LOSS OF CONSCIOUSNESS [None]
  - MULTIPLE SCLEROSIS RELAPSE [None]
  - NAUSEA [None]
  - NERVOUS SYSTEM DISORDER [None]
  - PAIN [None]
  - SLUGGISHNESS [None]
  - THERAPEUTIC RESPONSE UNEXPECTED [None]
  - URINARY TRACT INFECTION [None]
  - VOMITING [None]
